FAERS Safety Report 17012259 (Version 2)
Quarter: 2019Q4

REPORT INFORMATION
  Report Type: Report from Study
  Country: JP (occurrence: JP)
  Receive Date: 20191108
  Receipt Date: 20191112
  Transmission Date: 20200122
  Serious: Yes (Hospitalization, Other)
  Sender: FDA-Public Use
  Company Number: JP-CELGENEUS-JPN-2015010487

PATIENT
  Age: 67 Year
  Sex: Male
  Weight: 57.1 kg

DRUGS (53)
  1. SODIUM FERROUS CITRATE [Concomitant]
     Active Substance: SODIUM FERROUS CITRATE
     Indication: ANAEMIA
     Dosage: 200 MILLIGRAM
     Route: 048
     Dates: start: 20141016, end: 20141201
  2. PREDNISOLONE. [Concomitant]
     Active Substance: PREDNISOLONE
     Indication: PSORIASIS
     Dosage: 1 PERCENT
     Route: 061
     Dates: start: 20141126, end: 20150114
  3. HEPARINOID [Concomitant]
     Active Substance: CHONDROITIN SULFATE (BOVINE)
     Indication: PSORIASIS
     Dosage: .6 PERCENT
     Route: 061
     Dates: start: 20150109, end: 20150114
  4. SOLDEM 3A [Concomitant]
     Active Substance: CARBOHYDRATES\POTASSIUM CHLORIDE\SODIUM CHLORIDE\SODIUM LACTATE
     Dosage: 500 MILLILITER
     Route: 041
     Dates: start: 20150331
  5. PROPOFOL. [Concomitant]
     Active Substance: PROPOFOL
     Indication: EPIDURAL ANAESTHESIA
     Dosage: 20 MILLIGRAM
     Route: 041
     Dates: start: 20150309, end: 20150309
  6. DROPERIDOL. [Concomitant]
     Active Substance: DROPERIDOL
     Indication: EPIDURAL ANAESTHESIA
     Dosage: 1.6 MILLIGRAM
     Route: 065
     Dates: start: 20150309, end: 20150312
  7. CARBAZOCHROME SODIUM SULFONATE HYDRATE [Concomitant]
     Indication: PRODUCT USED FOR UNKNOWN INDICATION
     Dosage: 2 GRAM
     Route: 041
     Dates: start: 20150312, end: 20150314
  8. WHITE PETROLATUM [Concomitant]
     Active Substance: PETROLATUM
     Indication: PSORIASIS
     Dosage: 1 ADEQUATE
     Route: 061
     Dates: start: 20140210, end: 20150304
  9. SENNOSIDE A B CALCIUM [Concomitant]
     Indication: ENDOSCOPY LARGE BOWEL
     Dosage: 36 MILLIGRAM
     Route: 048
     Dates: start: 20141218, end: 20141218
  10. MAGNESIUM CITRATE. [Concomitant]
     Active Substance: MAGNESIUM CITRATE
     Indication: ENEMA ADMINISTRATION
     Dosage: 34 GRAM
     Route: 048
     Dates: start: 20150305, end: 20150305
  11. GLUACETO 35 [Concomitant]
     Indication: NUTRITIONAL SUPPLEMENTATION
     Dosage: 1000 MILLILITER
     Route: 041
     Dates: start: 20150307, end: 20150308
  12. DESFLURANE. [Concomitant]
     Active Substance: DESFLURANE
     Indication: EPIDURAL ANAESTHESIA
     Dosage: 360 MILLILITER
     Route: 055
     Dates: start: 20150309, end: 20150309
  13. TRANEXAMIC ACID. [Concomitant]
     Active Substance: TRANEXAMIC ACID
     Indication: PRODUCT USED FOR UNKNOWN INDICATION
     Dosage: 2 GRAM
     Route: 041
     Dates: start: 20150312, end: 20150314
  14. MAGNESIUM OXIDE. [Concomitant]
     Active Substance: MAGNESIUM OXIDE
     Indication: CONSTIPATION
     Dosage: 1980 MILLIGRAM
     Route: 048
     Dates: start: 20141001, end: 20141225
  15. METOCLOPRAMIDE. [Concomitant]
     Active Substance: METOCLOPRAMIDE
     Route: 048
     Dates: start: 20150611
  16. FLURBIPROFEN AXETIL [Concomitant]
     Active Substance: FLURBIPROFEN AXETIL
     Indication: PROCEDURAL PAIN
     Dosage: 50 MILLIGRAM
     Route: 041
     Dates: start: 20150310, end: 20150310
  17. ASCORBIC ACID. [Concomitant]
     Active Substance: ASCORBIC ACID
     Indication: NUTRITIONAL SUPPLEMENTATION
     Dosage: 500 MILLIGRAM
     Route: 041
     Dates: start: 20150307, end: 20150308
  18. LIDOCAINE HYDROCHLORIDE MONOHYDRATE [Concomitant]
     Active Substance: LIDOCAINE HYDROCHLORIDE
     Indication: PRODUCT USED FOR UNKNOWN INDICATION
     Dosage: 100 MILLIGRAM
     Route: 065
     Dates: start: 20150309, end: 20150312
  19. ROPIVACAINE HYDROCHLORIDE. [Concomitant]
     Active Substance: ROPIVACAINE HYDROCHLORIDE
     Dosage: 126 MILLIGRAM
     Route: 065
     Dates: start: 20150310, end: 20150312
  20. METOCLOPRAMIDE. [Concomitant]
     Active Substance: METOCLOPRAMIDE
     Indication: NAUSEA
     Dosage: 10 MILLIGRAM
     Route: 048
     Dates: start: 20141219, end: 20141219
  21. SODIUM CHLORIDE/POTASSIUM CHLORIDE/SODIUM BICARBONATE/ANHYDROUS SODIUM [Concomitant]
     Indication: ENDOSCOPY LARGE BOWEL
     Dosage: 2.93/1.485/3.37/11.37G
     Route: 048
     Dates: start: 20141219, end: 20141219
  22. SCOPOLAMINE BUTYLBROMIDE [Concomitant]
     Active Substance: SCOPOLAMINE
     Indication: ENEMA ADMINISTRATION
     Dosage: 20 MILLIGRAM
     Route: 041
     Dates: start: 20150305, end: 20150305
  23. LIDOCAINE. [Concomitant]
     Active Substance: LIDOCAINE
     Indication: ENDOSCOPY LARGE BOWEL
     Dosage: 300 MILLIGRAM
     Route: 061
     Dates: start: 20141219, end: 20141219
  24. SOLACET F [Concomitant]
     Active Substance: CALCIUM CHLORIDE\POTASSIUM CHLORIDE\SODIUM ACETATE\SODIUM CHLORIDE
     Indication: NUTRITIONAL SUPPLEMENTATION
     Dosage: 2000 MILLILITER
     Route: 041
     Dates: start: 20150309, end: 20150309
  25. SOLDEM 3A [Concomitant]
     Active Substance: CARBOHYDRATES\POTASSIUM CHLORIDE\SODIUM CHLORIDE\SODIUM LACTATE
     Indication: NUTRITIONAL SUPPLEMENTATION
     Dosage: 500 MILLILITER
     Route: 041
     Dates: start: 20150309, end: 20150309
  26. FENTANYL CITRATE. [Concomitant]
     Active Substance: FENTANYL CITRATE
     Indication: EPIDURAL ANAESTHESIA
     Dosage: .26 MILLIGRAM
     Route: 065
     Dates: start: 20150309, end: 20150309
  27. ROCURONIUM BROMIDE. [Concomitant]
     Active Substance: ROCURONIUM BROMIDE
     Indication: PRODUCT USED FOR UNKNOWN INDICATION
     Dosage: 80 MILLIGRAM
     Route: 041
     Dates: start: 20150309, end: 20150309
  28. INDAST [Concomitant]
     Indication: INFECTION PROPHYLAXIS
     Dosage: 1 GRAM
     Route: 041
     Dates: start: 20150327
  29. MAGNESIUM OXIDE. [Concomitant]
     Active Substance: MAGNESIUM OXIDE
     Route: 048
     Dates: start: 20141111, end: 20141225
  30. SCOPOLAMINE BUTYLBROMIDE [Concomitant]
     Active Substance: SCOPOLAMINE
     Indication: ENDOSCOPY LARGE BOWEL
     Dosage: 20 MILLIGRAM
     Route: 041
     Dates: start: 20141219, end: 20141219
  31. ECABET SODIUM HYDRATE [Concomitant]
     Active Substance: ECABET SODIUM
     Indication: GASTRIC ULCER
     Dosage: 2.001 GRAM
     Route: 048
     Dates: start: 20141219, end: 20150225
  32. SOLACET F [Concomitant]
     Active Substance: CALCIUM CHLORIDE\POTASSIUM CHLORIDE\SODIUM ACETATE\SODIUM CHLORIDE
     Dosage: 500 MILLILITER
     Route: 041
     Dates: start: 20150310, end: 20150310
  33. AMIDOTRIZOIC ACID [Concomitant]
     Indication: ENEMA ADMINISTRATION
     Dosage: 400 MILLILITER
     Route: 065
     Dates: start: 20150305, end: 20150305
  34. SODIUM PICOSULFATE HYDRATE [Concomitant]
     Active Substance: SODIUM PICOSULFATE
     Indication: ENEMA ADMINISTRATION
     Dosage: 150 MILLIGRAM
     Route: 048
     Dates: start: 20150308, end: 20150308
  35. VITAMEDIN [Concomitant]
     Active Substance: CYANOCOBALAMIN\PYRIDOXINE HYDROCHLORIDE\THIAMINE
     Indication: NUTRITIONAL SUPPLEMENTATION
     Dosage: 107.13/100/1 MG
     Route: 041
     Dates: start: 20150307, end: 20150308
  36. FENTANYL CITRATE. [Concomitant]
     Active Substance: FENTANYL CITRATE
     Dosage: .32 MILLIGRAM
     Route: 065
     Dates: start: 20150310, end: 20150312
  37. SOLACET D [Concomitant]
     Dosage: 500 MILLIGRAM
     Route: 041
     Dates: start: 20150321
  38. CC-10004 [Suspect]
     Active Substance: APREMILAST
     Indication: PSORIASIS
     Dosage: 40 MILLIGRAM
     Route: 048
     Dates: start: 20140709, end: 20141219
  39. HUMAN INSULIN [Concomitant]
     Active Substance: INSULIN HUMAN
     Indication: PRODUCT USED FOR UNKNOWN INDICATION
     Dosage: 2-8
     Route: 058
     Dates: start: 20150310
  40. IOPAMIDOL [Concomitant]
     Active Substance: IOPAMIDOL
     Indication: PRODUCT USED FOR UNKNOWN INDICATION
     Dosage: 100 MILLILITER
     Route: 041
     Dates: start: 20150304, end: 20150304
  41. REMIFENTANIL HYDROCHLORIDE. [Concomitant]
     Active Substance: REMIFENTANIL HYDROCHLORIDE
     Indication: EPIDURAL ANAESTHESIA
     Dosage: 2 MILLIGRAM
     Route: 041
     Dates: start: 20150309, end: 20150309
  42. EPHEDRINE HYDROCHLORIDE [Concomitant]
     Active Substance: EPHEDRINE HYDROCHLORIDE
     Indication: PRODUCT USED FOR UNKNOWN INDICATION
     Dosage: 16 MILLIGRAM
     Route: 041
     Dates: start: 20150309, end: 20150309
  43. PHENYLEPHRINE HYDROCHLORIDE. [Concomitant]
     Active Substance: PHENYLEPHRINE HYDROCHLORIDE
     Indication: PRODUCT USED FOR UNKNOWN INDICATION
     Dosage: 4 MILLIGRAM
     Route: 041
     Dates: start: 20150309, end: 20150309
  44. ROPIVACAINE HYDROCHLORIDE. [Concomitant]
     Active Substance: ROPIVACAINE HYDROCHLORIDE
     Indication: PRODUCT USED FOR UNKNOWN INDICATION
     Route: 065
     Dates: start: 20150309, end: 20150309
  45. SOLACET D [Concomitant]
     Indication: NUTRITIONAL SUPPLEMENTATION
     Dosage: 1000 MILLILITER
     Route: 041
     Dates: start: 20150310, end: 20150320
  46. RABEPRAZOLE SODIUM. [Concomitant]
     Active Substance: RABEPRAZOLE SODIUM
     Indication: GASTRIC ULCER
     Dosage: 10 MILLIGRAM
     Route: 048
     Dates: start: 20141006, end: 20150225
  47. SODIUM ALGINATE [Concomitant]
     Active Substance: SODIUM ALGINATE
     Indication: GASTRIC ULCER
     Dosage: 60 MILLILITER
     Route: 048
     Dates: start: 20141007, end: 20141218
  48. IOHEXOL [Concomitant]
     Active Substance: IOHEXOL
     Indication: COMPUTERISED TOMOGRAM
     Dosage: 64.71 GRAM
     Route: 041
     Dates: start: 20150109, end: 20150109
  49. IOPAMIDOL [Concomitant]
     Active Substance: IOPAMIDOL
     Dosage: 100 MILLILITER
     Route: 041
     Dates: start: 20150318, end: 20150318
  50. IOPAMIDOL [Concomitant]
     Active Substance: IOPAMIDOL
     Dosage: 100 MILLILITER
     Route: 041
     Dates: start: 20150327, end: 20150327
  51. SODIUM PICOSULFATE HYDRATE [Concomitant]
     Active Substance: SODIUM PICOSULFATE
     Indication: SURGERY
  52. ASCORBIC ACID. [Concomitant]
     Active Substance: ASCORBIC ACID
     Dosage: 500 MILLIGRAM
     Route: 041
     Dates: start: 20150310, end: 20150320
  53. CEFMETAZOLE SODIUM [Concomitant]
     Active Substance: CEFMETAZOLE SODIUM
     Indication: INFECTION PROPHYLAXIS
     Dosage: 2 GRAM
     Route: 041
     Dates: start: 20150309, end: 20150320

REACTIONS (3)
  - Colon cancer metastatic [Recovering/Resolving]
  - Pneumothorax [Recovered/Resolved]
  - Adenocarcinoma of colon [Recovering/Resolving]

NARRATIVE: CASE EVENT DATE: 20141219
